FAERS Safety Report 8498088 (Version 2)
Quarter: 2012Q4

REPORT INFORMATION
  Report Type: 
  Country: US (occurrence: US)
  Receive Date: 20120406
  Receipt Date: 20120919
  Transmission Date: 20130627
  Serious: Yes (Death)
  Sender: FDA-Public Use
  Company Number: US-GLAXOSMITHKLINE-A0972384A

PATIENT
  Age: 88 Year
  Sex: Male
  Weight: 83.2 kg

DRUGS (16)
  1. VOTRIENT [Suspect]
     Indication: RENAL CANCER
     Dosage: 800MG Per day
     Route: 048
     Dates: start: 20110425
  2. PROTONIX [Concomitant]
  3. MUCINEX DM [Concomitant]
  4. EPOGEN [Concomitant]
  5. ALLOPURINOL [Concomitant]
  6. AMBIEN [Concomitant]
  7. CALCITROL [Concomitant]
  8. PROTEIN POWDER [Concomitant]
  9. VITAMIN D [Concomitant]
  10. VITAMIN B12 [Concomitant]
  11. DOCUSATE [Concomitant]
  12. LACTULOSE [Concomitant]
  13. MULTIVITAMINS [Concomitant]
  14. MEGACE [Concomitant]
  15. ALPRAZOLAM [Concomitant]
  16. LOMOTIL [Concomitant]

REACTIONS (2)
  - Renal failure chronic [Fatal]
  - Diarrhoea [Unknown]
